FAERS Safety Report 20627662 (Version 6)
Quarter: 2022Q4

REPORT INFORMATION
  Report Type: Report from Study
  Country: US (occurrence: US)
  Receive Date: 20220323
  Receipt Date: 20221111
  Transmission Date: 20230113
  Serious: Yes (Other)
  Sender: FDA-Public Use
  Company Number: US-JAZZ-2022-US-005856

PATIENT
  Sex: Female

DRUGS (9)
  1. XYWAV [Suspect]
     Active Substance: CALCIUM OXYBATE\MAGNESIUM OXYBATE\POTASSIUM OXYBATE\SODIUM OXYBATE
     Indication: Hypersomnia
     Dosage: 1.5 GRAM, BID
     Route: 048
     Dates: start: 202202
  2. XYWAV [Suspect]
     Active Substance: CALCIUM OXYBATE\MAGNESIUM OXYBATE\POTASSIUM OXYBATE\SODIUM OXYBATE
     Dosage: 2.25 GRAM, BID
     Route: 048
  3. XYWAV [Suspect]
     Active Substance: CALCIUM OXYBATE\MAGNESIUM OXYBATE\POTASSIUM OXYBATE\SODIUM OXYBATE
     Dosage: 2.75 G TWICE NIGHTLY AND INCREASING THE SECOND DOSE BY 0.25G EVERY 7 DAYS
  4. EMGALITY [Concomitant]
     Active Substance: GALCANEZUMAB-GNLM
     Indication: Product used for unknown indication
     Dosage: UNK
     Dates: start: 20220315
  5. LEVOTHYROXINE [Concomitant]
     Active Substance: LEVOTHYROXINE
     Indication: Product used for unknown indication
     Dosage: UNK
  6. NYSTATIN [Concomitant]
     Active Substance: NYSTATIN
     Indication: Product used for unknown indication
     Dosage: 100,000 UNIT/ML
     Dates: start: 20220317
  7. PHENAZOPYRIDINE [Concomitant]
     Active Substance: PHENAZOPYRIDINE
     Indication: Product used for unknown indication
     Dosage: UNK
     Dates: start: 20220316
  8. DIFLUCAN [Concomitant]
     Active Substance: FLUCONAZOLE
     Indication: Product used for unknown indication
     Dosage: UNK
     Dates: start: 20220328
  9. HYDROXYCHLOROQUINE [Concomitant]
     Active Substance: HYDROXYCHLOROQUINE
     Indication: Product used for unknown indication
     Dosage: UNK
     Dates: start: 20221102

REACTIONS (32)
  - Dystonia [Unknown]
  - Dupuytren^s contracture [Unknown]
  - Oral pain [Unknown]
  - Abdominal pain upper [Unknown]
  - Dry eye [Unknown]
  - Eye pain [Unknown]
  - Candida infection [Recovering/Resolving]
  - Dry throat [Not Recovered/Not Resolved]
  - Yawning [Unknown]
  - Oropharyngeal discomfort [Unknown]
  - Condition aggravated [Unknown]
  - Unevaluable event [Unknown]
  - Apnoea [Unknown]
  - Dyskinesia [Unknown]
  - Musculoskeletal discomfort [Unknown]
  - Bladder pain [Unknown]
  - Lymphadenopathy [Unknown]
  - Chest discomfort [Unknown]
  - Euphoric mood [Unknown]
  - Chills [Unknown]
  - Dyspepsia [Unknown]
  - Middle insomnia [Unknown]
  - Headache [Unknown]
  - Nausea [Unknown]
  - Muscle spasms [Unknown]
  - Memory impairment [Unknown]
  - Pain [Unknown]
  - Bruxism [Unknown]
  - Feeling drunk [Not Recovered/Not Resolved]
  - Urinary incontinence [Unknown]
  - Product dose omission issue [Unknown]
  - Intentional product use issue [Unknown]
